FAERS Safety Report 19972566 (Version 1)
Quarter: 2021Q4

REPORT INFORMATION
  Report Type: Spontaneous
  Country: US (occurrence: US)
  Receive Date: 20211019
  Receipt Date: 20211019
  Transmission Date: 20220303
  Serious: No
  Sender: FDA-Public Use
  Company Number: US-PFIZER INC-2021675430

PATIENT
  Age: 55 Year
  Sex: Female

DRUGS (2)
  1. INLYTA [Suspect]
     Active Substance: AXITINIB
     Dosage: 5 MG
     Dates: start: 20210507
  2. INLYTA [Suspect]
     Active Substance: AXITINIB
     Dosage: 5 MG
     Dates: start: 20210510

REACTIONS (6)
  - Increased viscosity of bronchial secretion [Unknown]
  - Vomiting [Unknown]
  - Nausea [Unknown]
  - Oral pain [Unknown]
  - Taste disorder [Unknown]
  - Rhinitis [Unknown]
